FAERS Safety Report 4832094-3 (Version None)
Quarter: 2005Q4

REPORT INFORMATION
  Report Type: 
  Country: None (occurrence: None)
  Receive Date: 20051116
  Receipt Date: 20051031
  Transmission Date: 20060501
  Serious: Yes (Hospitalization)
  Sender: FDA-Public Use
  Company Number: 2005EU002533

PATIENT
  Age: 49 Year
  Sex: Female

DRUGS (6)
  1. PROGRAF [Suspect]
     Indication: RENAL TRANSPLANT
     Dosage: 3.50 MG, ORAL
     Route: 048
     Dates: start: 20041015
  2. PLENDIL [Suspect]
     Indication: RENAL TRANSPLANT
     Dosage: 10.00 MG, ORAL
     Route: 048
     Dates: start: 20050620, end: 20051018
  3. CALCICHEW (CALCIUM CARBONATE) [Concomitant]
  4. PREDNISONE [Concomitant]
  5. RENAGEL [Concomitant]
  6. ALFACALCIDOL (ALFACALCIDOL) [Concomitant]

REACTIONS (3)
  - DRUG INTERACTION [None]
  - HYPERCALCAEMIA [None]
  - HYPOCALCAEMIA [None]
